FAERS Safety Report 9799121 (Version 1)
Quarter: 2014Q1

REPORT INFORMATION
  Report Type: Spontaneous
  Country: US (occurrence: None)
  Receive Date: 20140103
  Receipt Date: 20140103
  Transmission Date: 20141002
  Serious: Yes (Other)
  Sender: FDA-Public Use
  Company Number: None

PATIENT
  Sex: Female

DRUGS (10)
  1. DOXYLAMINE [Suspect]
     Indication: NERVE COMPRESSION
     Dosage: 2 PILLS
     Route: 048
     Dates: start: 2013, end: 201308
  2. CELEBREX [Concomitant]
  3. ATENOLOL [Concomitant]
  4. PRILIO [Concomitant]
  5. ASPIRIN [Concomitant]
  6. MIRALEX [Concomitant]
  7. CALTRATE [Concomitant]
  8. CENTRUM [Concomitant]
  9. FISH OIL [Concomitant]
  10. MAGNESIUM [Concomitant]

REACTIONS (2)
  - Restlessness [None]
  - Agitation [None]
